FAERS Safety Report 5065786-4 (Version None)
Quarter: 2006Q3

REPORT INFORMATION
  Report Type: 
  Country: None (occurrence: None)
  Receive Date: 20060719
  Receipt Date: 20051129
  Transmission Date: 20061208
  Serious: No
  Sender: FDA-Public Use
  Company Number: 05P-163-0318256-00

PATIENT
  Age: 36 Year
  Sex: Female

DRUGS (7)
  1. NORVIR [Suspect]
     Indication: DRUG USE FOR UNKNOWN INDICATION
     Dosage: PER ORAL
     Route: 048
  2. ATAZANAVIR [Suspect]
     Indication: DRUG USE FOR UNKNOWN INDICATION
  3. TENOFOVIR DF + EMTRICITABINE VS PLACEBO [Concomitant]
  4. DAPSONE [Concomitant]
  5. FLUCONAZOLE [Concomitant]
  6. AZITHROMYCIN [Concomitant]
  7. ABACAVIR + LAMIVUDINE VS PLACEBO [Concomitant]

REACTIONS (2)
  - BLOOD BILIRUBIN UNCONJUGATED INCREASED [None]
  - HYPERBILIRUBINAEMIA [None]
